FAERS Safety Report 9969169 (Version 1)
Quarter: 2014Q1

REPORT INFORMATION
  Report Type: Report from Study
  Country: US (occurrence: US)
  Receive Date: 20140306
  Receipt Date: 20140306
  Transmission Date: 20141002
  Serious: No
  Sender: FDA-Public Use
  Company Number: US-ABBVIE-13P-163-1142018-00

PATIENT
  Age: 50 Year
  Sex: Female

DRUGS (8)
  1. HUMIRA [Suspect]
     Indication: CROHN^S DISEASE
     Dates: start: 201211
  2. TRAZODONE [Concomitant]
     Indication: PRODUCT USED FOR UNKNOWN INDICATION
     Dosage: AT BEDTIME
  3. CYMBALTA [Concomitant]
     Indication: PRODUCT USED FOR UNKNOWN INDICATION
  4. PROVERA [Concomitant]
     Indication: MENOPAUSE
  5. LEVOTHYROXINE [Concomitant]
     Indication: HYPOTHYROIDISM
  6. MARIJUANA [Concomitant]
     Indication: GASTROINTESTINAL DISORDER
  7. BENADRYL [Concomitant]
     Indication: HYPERSENSITIVITY
  8. CLARITIN [Concomitant]
     Indication: HYPERSENSITIVITY

REACTIONS (6)
  - Anxiety [Recovered/Resolved]
  - Injection site bruising [Recovered/Resolved]
  - Injection site swelling [Recovered/Resolved]
  - Injection site pruritus [Recovered/Resolved]
  - Injection site erythema [Recovered/Resolved]
  - Insomnia [Recovered/Resolved]
